FAERS Safety Report 8872016 (Version 1)
Quarter: 2012Q4

REPORT INFORMATION
  Report Type: 
  Country: US (occurrence: US)
  Receive Date: 20121023
  Receipt Date: 20121023
  Transmission Date: 20130627
  Serious: Yes (Hospitalization, Other)
  Sender: FDA-Public Use
  Company Number: US-ASTELLAS-2010US003543

PATIENT

DRUGS (10)
  1. PROGRAF [Suspect]
     Indication: PANCREAS TRANSPLANT
     Dosage: 1 mg AM, 0.5 mg PM
     Route: 048
     Dates: start: 1998
  2. PROGRAF [Suspect]
     Indication: RENAL TRANSPLANT
     Dosage: 1.5 mg, UID/QD
     Route: 048
  3. CELLCEPT [Concomitant]
     Indication: PANCREAS TRANSPLANT
     Dosage: 250 mg, bid
     Route: 048
     Dates: start: 1998
  4. PREDNISONE [Concomitant]
     Indication: STEROID THERAPY
     Dosage: 5 mg, UID/QD
     Route: 048
     Dates: start: 1997
  5. LOTENSIN [Concomitant]
     Indication: HYPERTENSION
     Dosage: 10 mg, UID/QD
     Route: 048
     Dates: start: 1997
  6. TOPROL XL [Concomitant]
     Indication: HYPERTENSION
     Dosage: 50 mg, UID/QD
     Route: 048
     Dates: start: 1997
  7. ESTRADIOL [Concomitant]
     Indication: HORMONE REPLACEMENT THERAPY
     Dosage: 10 mg, UID/QD
     Route: 048
     Dates: start: 2008
  8. LIPITOR [Concomitant]
     Indication: BLOOD CHOLESTEROL INCREASED
     Dosage: 10 mg, UID/QD
     Route: 048
     Dates: start: 1997
  9. PROVERA [Concomitant]
     Indication: PRODUCT USED FOR UNKNOWN INDICATION
     Dosage: 4 injections, Yearly
     Route: 065
     Dates: start: 2008
  10. LEXAPRO [Concomitant]
     Indication: DEPRESSION
     Dosage: 50 mg, UID/QD
     Route: 048
     Dates: start: 2008

REACTIONS (3)
  - Off label use [Unknown]
  - Pancreas transplant [Unknown]
  - Pneumonia staphylococcal [Recovered/Resolved]
